FAERS Safety Report 9903224 (Version 4)
Quarter: 2014Q3

REPORT INFORMATION
  Report Type: Report from Study
  Country: BE (occurrence: BE)
  Receive Date: 20140217
  Receipt Date: 20140814
  Transmission Date: 20150326
  Serious: Yes (Other)
  Sender: FDA-Public Use
  Company Number: PHHY2014BE018330

PATIENT
  Age: 51 Year
  Sex: Female

DRUGS (1)
  1. GILENYA [Suspect]
     Active Substance: FINGOLIMOD HYDROCHLORIDE
     Indication: MULTIPLE SCLEROSIS
     Dosage: 0.5 MG, QD
     Route: 048
     Dates: start: 20120817

REACTIONS (5)
  - Regurgitation [Recovering/Resolving]
  - Oral fungal infection [Recovered/Resolved]
  - Impaired healing [Unknown]
  - Abdominal discomfort [Recovering/Resolving]
  - Costochondritis [Recovered/Resolved]

NARRATIVE: CASE EVENT DATE: 20140106
